FAERS Safety Report 5515618-2 (Version None)
Quarter: 2007Q4

REPORT INFORMATION
  Report Type: 
  Country: None (occurrence: None)
  Receive Date: 20071113
  Receipt Date: 20070725
  Transmission Date: 20080405
  Serious: No
  Sender: FDA-Public Use
  Company Number: A0662492A

PATIENT

DRUGS (1)
  1. COREG [Suspect]
     Dosage: 25TAB TWICE PER DAY
     Route: 048

REACTIONS (4)
  - ASTHENIA [None]
  - DRUG LEVEL BELOW THERAPEUTIC [None]
  - DYSPNOEA [None]
  - FATIGUE [None]
